FAERS Safety Report 5527671-0 (Version None)
Quarter: 2007Q4

REPORT INFORMATION
  Report Type: 
  Country: None (occurrence: None)
  Receive Date: 20071128
  Receipt Date: 20071115
  Transmission Date: 20080405
  Serious: Yes (Hospitalization)
  Sender: FDA-Public Use
  Company Number: FR-AMGEN-UK245469

PATIENT
  Sex: Male

DRUGS (2)
  1. NEULASTA [Suspect]
     Indication: CHEMOTHERAPY
     Route: 058
     Dates: start: 20070816, end: 20070816
  2. DENOSUMAB - BLINDED [Suspect]
     Indication: PROSTATE CANCER
     Route: 058
     Dates: start: 20060914

REACTIONS (3)
  - BRONCHITIS [None]
  - LUNG INFECTION [None]
  - SUPERINFECTION [None]
